FAERS Safety Report 6268758-7 (Version None)
Quarter: 2009Q3

REPORT INFORMATION
  Report Type: 
  Country: None (occurrence: None)
  Receive Date: 20090713
  Receipt Date: 20090713
  Transmission Date: 20100115
  Serious: Yes (Death)
  Sender: FDA-Public Use
  Company Number: None

PATIENT
  Sex: Female

DRUGS (1)
  1. REVLIMID [Suspect]
     Indication: AMYLOIDOSIS
     Dosage: 25MG  DAILY 21D/28D ORALLY
     Route: 048

REACTIONS (4)
  - CARDIAC ARREST [None]
  - DYSPNOEA [None]
  - HYPOXIA [None]
  - VENTRICULAR FIBRILLATION [None]
